FAERS Safety Report 10489688 (Version 1)
Quarter: 2014Q4

REPORT INFORMATION
  Report Type: Spontaneous
  Country: BR (occurrence: BR)
  Receive Date: 20141002
  Receipt Date: 20141002
  Transmission Date: 20150528
  Serious: Yes (Other)
  Sender: FDA-Public Use
  Company Number: BR-BAYER-2014-145385

PATIENT
  Age: 61 Year
  Sex: Female
  Weight: 59 kg

DRUGS (4)
  1. FLANAX [Suspect]
     Active Substance: NAPROXEN SODIUM
     Indication: SCIATIC NERVE INJURY
     Dosage: UNK
  2. DIAZEPAM. [Concomitant]
     Active Substance: DIAZEPAM
     Indication: SLEEP DISORDER THERAPY
     Dosage: 10 MG, QD
     Route: 048
     Dates: start: 1996
  3. FLANAX [Suspect]
     Active Substance: NAPROXEN SODIUM
     Indication: SCIATIC NERVE INJURY
     Dosage: 2 DF, QD
     Route: 048
     Dates: start: 20140920, end: 201409
  4. AMIODARONE [Concomitant]
     Active Substance: AMIODARONE
     Indication: ARRHYTHMIA
     Dosage: 0.5 DF, QD
     Route: 048
     Dates: start: 2005

REACTIONS (4)
  - Vaginal haemorrhage [Not Recovered/Not Resolved]
  - Diarrhoea [Unknown]
  - Urinary tract infection [Unknown]
  - Gallbladder pain [Unknown]

NARRATIVE: CASE EVENT DATE: 201409
